FAERS Safety Report 8955568 (Version 1)
Quarter: 2012Q4

REPORT INFORMATION
  Report Type: 
  Country: US (occurrence: US)
  Receive Date: 20121207
  Receipt Date: 20121207
  Transmission Date: 20130627
  Serious: Yes (Death)
  Sender: FDA-Public Use
  Company Number: US-ROCHE-1162356

PATIENT
  Age: 70 Year
  Sex: Female

DRUGS (2)
  1. RITUXAN [Suspect]
     Indication: PLATELET COUNT DECREASED
     Dosage: FIRST INFUSION
     Route: 042
  2. RITUXAN [Suspect]
     Indication: OFF LABEL USE
     Dosage: SECOND INFUSION
     Route: 042

REACTIONS (9)
  - Cerebrovascular accident [Fatal]
  - Cerebral thrombosis [Fatal]
  - Pain [Fatal]
  - Malaise [Fatal]
  - Abasia [Fatal]
  - Eye pain [Fatal]
  - Painful respiration [Fatal]
  - Hypersensitivity [Fatal]
  - Gingival pain [Fatal]
